FAERS Safety Report 17802844 (Version 1)
Quarter: 2020Q2

REPORT INFORMATION
  Report Type: Spontaneous
  Country: US (occurrence: US)
  Receive Date: 20200519
  Receipt Date: 20200519
  Transmission Date: 20200714
  Serious: Yes (Hospitalization)
  Sender: FDA-Public Use
  Company Number: None

PATIENT
  Age: 65 Year
  Sex: Female
  Weight: 59 kg

DRUGS (23)
  1. NIVOLUMAB [Suspect]
     Active Substance: NIVOLUMAB
     Indication: SMALL CELL LUNG CANCER
     Dosage: ?          OTHER FREQUENCY:Q4 WEEKS;?
     Route: 042
     Dates: start: 20200110
  2. MARINOL [Concomitant]
     Active Substance: DRONABINOL
  3. VIT D [Concomitant]
     Active Substance: VITAMIN D NOS
  4. OXYCODONE [Concomitant]
     Active Substance: OXYCODONE
  5. PROMETHAZINE [Concomitant]
     Active Substance: PROMETHAZINE HYDROCHLORIDE
  6. NIACIN. [Concomitant]
     Active Substance: NIACIN
  7. MSO4 ER [Concomitant]
  8. ALOGLIPTIN. [Concomitant]
     Active Substance: ALOGLIPTIN
  9. ROSUVASTATIN. [Concomitant]
     Active Substance: ROSUVASTATIN
  10. RUCAPARIB [Suspect]
     Active Substance: RUCAPARIB
     Indication: SMALL CELL LUNG CANCER
     Route: 048
     Dates: start: 20200110
  11. LISINOPRIL. [Concomitant]
     Active Substance: LISINOPRIL
  12. PROCHLORPERAZINE. [Concomitant]
     Active Substance: PROCHLORPERAZINE
  13. METOPROLOL. [Concomitant]
     Active Substance: METOPROLOL
  14. PROTONIX [Concomitant]
     Active Substance: PANTOPRAZOLE SODIUM
  15. NAPROXEN. [Concomitant]
     Active Substance: NAPROXEN
  16. ASA [Concomitant]
     Active Substance: ASPIRIN
  17. DESVENLAFAXINE. [Concomitant]
     Active Substance: DESVENLAFAXINE
  18. ZOFRAN [Concomitant]
     Active Substance: ONDANSETRON HYDROCHLORIDE
  19. INSULIN-R [Concomitant]
  20. GLIMEPIRIDE. [Concomitant]
     Active Substance: GLIMEPIRIDE
  21. TRAZODONE [Concomitant]
     Active Substance: TRAZODONE HYDROCHLORIDE
  22. LEVOTHYROXINE. [Concomitant]
     Active Substance: LEVOTHYROXINE
  23. DULOXETINE. [Concomitant]
     Active Substance: DULOXETINE

REACTIONS (1)
  - Constipation [None]

NARRATIVE: CASE EVENT DATE: 20200512
